FAERS Safety Report 12890297 (Version 2)
Quarter: 2017Q1

REPORT INFORMATION
  Report Type: Spontaneous
  Country: US (occurrence: US)
  Receive Date: 20161027
  Receipt Date: 20170315
  Transmission Date: 20170428
  Serious: Yes (Other)
  Sender: FDA-Public Use
  Company Number: US-TEVA-706961USA

PATIENT
  Sex: Female

DRUGS (14)
  1. AMPYRA [Concomitant]
     Active Substance: DALFAMPRIDINE
  2. OXYBUYNIN [Concomitant]
  3. COPAXONE [Suspect]
     Active Substance: GLATIRAMER ACETATE
     Indication: MULTIPLE SCLEROSIS
     Route: 058
  4. LANTUS [Concomitant]
     Active Substance: INSULIN GLARGINE
  5. METFORMIN [Concomitant]
     Active Substance: METFORMIN HYDROCHLORIDE
  6. NOVOLOG [Concomitant]
     Active Substance: INSULIN ASPART
  7. FAMOTIDINE. [Concomitant]
     Active Substance: FAMOTIDINE
  8. TAMSULOSIN [Concomitant]
     Active Substance: TAMSULOSIN
  9. BACLOFEN. [Concomitant]
     Active Substance: BACLOFEN
  10. DILTIAZEM. [Concomitant]
     Active Substance: DILTIAZEM
  11. BENAZEPRIL [Concomitant]
     Active Substance: BENAZEPRIL HYDROCHLORIDE
  12. HYDROCO/APAP [Concomitant]
     Active Substance: ACETAMINOPHEN\HYDROCODONE
  13. VITAMIN D [Concomitant]
     Active Substance: CHOLECALCIFEROL
  14. OMEPRAZOLE PRAMIPEXOLE [Concomitant]

REACTIONS (2)
  - Multiple sclerosis relapse [Recovered/Resolved]
  - Fatigue [Unknown]
